FAERS Safety Report 5103198-5 (Version None)
Quarter: 2006Q3

REPORT INFORMATION
  Report Type: 
  Country: None (occurrence: None)
  Receive Date: 20060912
  Receipt Date: 20060912
  Transmission Date: 20061208
  Serious: Yes (Death)
  Sender: FDA-Public Use
  Company Number: None

PATIENT
  Sex: Female
  Weight: 67.1324 kg

DRUGS (8)
  1. YASMIN [Suspect]
     Indication: CONTRACEPTION
     Dosage: 1 PILL DAILY PO
     Route: 048
     Dates: start: 20060626
  2. NEURONTIN [Concomitant]
  3. RISPERDAL [Concomitant]
  4. LEXAPRO [Concomitant]
  5. LUNESTA [Concomitant]
  6. KLONOPIN [Concomitant]
  7. DULCOLAX [Concomitant]
  8. KRISTALOSE [Concomitant]

REACTIONS (3)
  - DYSPNOEA [None]
  - LOSS OF CONSCIOUSNESS [None]
  - RESUSCITATION [None]
